FAERS Safety Report 21924082 (Version 2)
Quarter: 2025Q1

REPORT INFORMATION
  Report Type: Spontaneous
  Country: US (occurrence: US)
  Receive Date: 20230130
  Receipt Date: 20250227
  Transmission Date: 20250409
  Serious: No
  Sender: UCB
  Company Number: US-UCBSA-2022011206

PATIENT
  Sex: Male

DRUGS (4)
  1. LEVETIRACETAM [Suspect]
     Active Substance: LEVETIRACETAM
     Indication: Myoclonus
  2. LEVETIRACETAM [Suspect]
     Active Substance: LEVETIRACETAM
     Indication: Off label use
  3. PERAMPANEL [Suspect]
     Active Substance: PERAMPANEL
     Indication: Myoclonus
  4. VALPROIC ACID [Concomitant]
     Active Substance: VALPROIC ACID
     Indication: Myoclonus

REACTIONS (2)
  - Drug intolerance [Unknown]
  - Off label use [Unknown]
